FAERS Safety Report 18236119 (Version 1)
Quarter: 2020Q3

REPORT INFORMATION
  Report Type: Spontaneous
  Country: US (occurrence: US)
  Receive Date: 20200906
  Receipt Date: 20200906
  Transmission Date: 20201103
  Serious: No
  Sender: FDA-Public Use
  Company Number: US-DECIPHERA PHARMACEUTICALS LLC-2020-US-000332

PATIENT
  Sex: Female

DRUGS (1)
  1. QINLOCK [Suspect]
     Active Substance: RIPRETINIB
     Indication: MALIGNANT CONNECTIVE TISSUE NEOPLASM
     Dosage: 150 MILLIGRAM, QD
     Route: 048
     Dates: start: 20200731

REACTIONS (5)
  - Pain in extremity [Unknown]
  - Hyperkeratosis [Unknown]
  - Hypertension [Unknown]
  - Stress [Unknown]
  - Gingival bleeding [Unknown]
